FAERS Safety Report 25065223 (Version 1)
Quarter: 2025Q1

REPORT INFORMATION
  Report Type: Spontaneous
  Country: PL (occurrence: PL)
  Receive Date: 20250311
  Receipt Date: 20250311
  Transmission Date: 20250409
  Serious: Yes (Hospitalization, Other)
  Sender: BRISTOL-MYERS SQUIBB COMPANY
  Company Number: None

PATIENT
  Age: 84 Year
  Sex: Female

DRUGS (9)
  1. ELIQUIS [Suspect]
     Active Substance: APIXABAN
     Indication: Atrial fibrillation
     Route: 048
     Dates: start: 20210609, end: 20210612
  2. AMILORIDE HYDROCHLORIDE AND HYDROCHLOROTHIAZIDE [Suspect]
     Active Substance: AMILORIDE HYDROCHLORIDE\HYDROCHLOROTHIAZIDE
     Indication: Hypertension
     Dosage: 5 MG + 50 MG
     Dates: end: 20210612
  3. AMOXICILLIN\CLAVULANIC ACID [Suspect]
     Active Substance: AMOXICILLIN\CLAVULANIC ACID
     Indication: C-reactive protein abnormal
     Route: 048
     Dates: start: 20210609, end: 20210612
  4. FAMOTIDINE [Suspect]
     Active Substance: FAMOTIDINE
     Indication: Product used for unknown indication
     Route: 048
     Dates: end: 20210612
  5. NITRENDYPINA EGIS [Concomitant]
     Indication: Hypertension
     Dosage: THERAPY ONGOING
     Route: 048
  6. BISOPROLOL [Concomitant]
     Active Substance: BISOPROLOL
     Indication: Hypertension
     Dosage: THERAPY ONGOING
     Route: 048
  7. AVASART [Concomitant]
     Indication: Hypertension
     Dosage: THERAPY ONGOING
     Route: 048
  8. FERROUS SULFATE [Concomitant]
     Active Substance: FERROUS SULFATE
     Indication: Iron deficiency anaemia
     Dosage: FILM-COATED EXTENDED-RELEASE TABLETS
     Route: 048
     Dates: end: 20210612
  9. EUTHYROX [Concomitant]
     Active Substance: LEVOTHYROXINE SODIUM
     Indication: Post procedural hypothyroidism
     Dosage: EUTHYROX N 88 ALTERNATING WITH EUTHYROX N100 DOSAGE 1-0-0, THERAPY ONGOING
     Route: 048

REACTIONS (4)
  - Lower gastrointestinal haemorrhage [Unknown]
  - Thrombocytopenia [Unknown]
  - Anaemia [Unknown]
  - Condition aggravated [Unknown]

NARRATIVE: CASE EVENT DATE: 20210612
